FAERS Safety Report 5472408-7 (Version None)
Quarter: 2007Q3

REPORT INFORMATION
  Report Type: 
  Country: None (occurrence: None)
  Receive Date: 20070926
  Receipt Date: 20070914
  Transmission Date: 20080115
  Serious: Yes (Hospitalization)
  Sender: FDA-Public Use
  Company Number: GB-1164113

PATIENT
  Age: 8 Month
  Sex: Male

DRUGS (2)
  1. CHLORAMPHENICOL [Suspect]
     Indication: EYE INFECTION
     Dosage: OPHTHALMIC
     Route: 047
     Dates: start: 20070723, end: 20070723
  2. FUSIDIC ACID [Concomitant]

REACTIONS (2)
  - BLISTER [None]
  - EYE IRRITATION [None]
